FAERS Safety Report 5342286-5 (Version None)
Quarter: 2007Q2

REPORT INFORMATION
  Report Type: 
  Country: None (occurrence: None)
  Receive Date: 20070416
  Receipt Date: 20070309
  Transmission Date: 20071010
  Serious: No
  Sender: FDA-Public Use
  Company Number: 2007SP000865

PATIENT
  Sex: Female

DRUGS (2)
  1. LUNESTA [Suspect]
     Indication: PSYCHOMOTOR HYPERACTIVITY
     Dosage: 3 MG;ORAL
     Route: 048
     Dates: start: 20060101
  2. ZOLOFT [Concomitant]

REACTIONS (1)
  - SEDATION [None]
